FAERS Safety Report 17814129 (Version 3)
Quarter: 2020Q3

REPORT INFORMATION
  Report Type: Report from Study
  Country: US (occurrence: US)
  Receive Date: 20200522
  Receipt Date: 20200701
  Transmission Date: 20201102
  Serious: Yes (Hospitalization, Other)
  Sender: FDA-Public Use
  Company Number: US-BRISTOL-MYERS SQUIBB COMPANY-BMS-2020-038118

PATIENT
  Sex: Female

DRUGS (3)
  1. APIXABAN [Suspect]
     Active Substance: APIXABAN
     Indication: PRODUCT USED FOR UNKNOWN INDICATION
     Dosage: UNK
     Route: 065
  2. SUTENT [Suspect]
     Active Substance: SUNITINIB MALATE
     Indication: RENAL CANCER
     Dosage: 50 MILLIGRAM
     Route: 065
  3. SUTENT [Suspect]
     Active Substance: SUNITINIB MALATE
     Indication: RENAL CELL CARCINOMA

REACTIONS (11)
  - Weight decreased [Recovering/Resolving]
  - White blood cell count decreased [Unknown]
  - Arthritis [Unknown]
  - Gastrointestinal wall thickening [Unknown]
  - Vomiting [Unknown]
  - Eating disorder [Unknown]
  - Oral pain [Unknown]
  - Contusion [Unknown]
  - Neoplasm [Unknown]
  - Pulmonary embolism [Unknown]
  - Nausea [Unknown]
